FAERS Safety Report 16243554 (Version 2)
Quarter: 2019Q2

REPORT INFORMATION
  Report Type: Report from Study
  Country: US (occurrence: US)
  Receive Date: 20190426
  Receipt Date: 20190524
  Transmission Date: 20190711
  Serious: Yes (Other)
  Sender: FDA-Public Use
  Company Number: US-ALEXION PHARMACEUTICALS INC.-A201906104

PATIENT
  Sex: Male

DRUGS (2)
  1. MESTINON [Concomitant]
     Active Substance: PYRIDOSTIGMINE BROMIDE
     Indication: PRODUCT USED FOR UNKNOWN INDICATION
     Route: 065
  2. SOLIRIS [Suspect]
     Active Substance: ECULIZUMAB
     Indication: PRODUCT USED FOR UNKNOWN INDICATION
     Dosage: UNK
     Route: 065
     Dates: end: 20190227

REACTIONS (8)
  - Plasmapheresis [Unknown]
  - Dysarthria [Unknown]
  - Muscle spasms [Unknown]
  - Knee operation [Unknown]
  - Dysphagia [Unknown]
  - Mastication disorder [Unknown]
  - Muscle fatigue [Unknown]
  - Muscular weakness [Unknown]
